FAERS Safety Report 6532614-7 (Version None)
Quarter: 2010Q1

REPORT INFORMATION
  Report Type: 
  Country: None (occurrence: None)
  Receive Date: 20100111
  Receipt Date: 20100106
  Transmission Date: 20100710
  Serious: Yes (Life-Threatening, Hospitalization)
  Sender: FDA-Public Use
  Company Number: MX-ELI_LILLY_AND_COMPANY-MX200912002905

PATIENT
  Sex: Female

DRUGS (2)
  1. HUMALOG MIX 75/25 [Suspect]
     Indication: TYPE 2 DIABETES MELLITUS
     Dosage: 20 IU, EACH EVENING
     Route: 058
  2. FOSAMAX PLUS D [Concomitant]
     Indication: OSTEOPOROSIS
     Dosage: UNK, OTHER
     Dates: start: 20090301

REACTIONS (1)
  - HYPOGLYCAEMIA [None]
